FAERS Safety Report 4815378-4 (Version None)
Quarter: 2005Q4

REPORT INFORMATION
  Report Type: 
  Country: None (occurrence: None)
  Receive Date: 20051026
  Receipt Date: 20051017
  Transmission Date: 20060501
  Serious: Yes (Hospitalization)
  Sender: FDA-Public Use
  Company Number: HQWYE103719OCT05

PATIENT
  Age: 85 Year
  Sex: Male
  Weight: 72.64 kg

DRUGS (1)
  1. MYLOTARG [Suspect]
     Indication: ACUTE MYELOID LEUKAEMIA
     Dosage: 16 MG 1X PER 1 DAY, INTRAVENOUS
     Route: 042
     Dates: start: 20050928, end: 20050928

REACTIONS (8)
  - ANAEMIA [None]
  - ASTHENIA [None]
  - BACTERIAL INFECTION [None]
  - ENTEROCOCCAL INFECTION [None]
  - FATIGUE [None]
  - LETHARGY [None]
  - LEUKOPENIA [None]
  - THROMBOCYTOPENIA [None]
